FAERS Safety Report 9793486 (Version 2)
Quarter: 2014Q1

REPORT INFORMATION
  Report Type: Spontaneous
  Country: US (occurrence: US)
  Receive Date: 20140102
  Receipt Date: 20140102
  Transmission Date: 20141002
  Serious: Yes (Death)
  Sender: FDA-Public Use
  Company Number: US-NAPPMUNDI-USA-2013-0108521

PATIENT
  Age: 43 Year
  Sex: Male

DRUGS (8)
  1. OXYCONTIN (NDA 22-272) [Suspect]
     Indication: PAIN
     Dosage: UNKNOWN
     Route: 048
  2. OXYCODONE HYDROCHLORIDE (SIMILAR TO NDA 22-272) [Suspect]
     Indication: BACK PAIN
     Dosage: UNKNOWN
  3. TRAMADOL (SIMILAR TO NDA 21-745) [Suspect]
     Indication: BACK PAIN
     Dosage: UNKNOWN
  4. VALIUM /00017001/ [Suspect]
     Indication: BACK PAIN
     Dosage: UNKNOWN
     Route: 048
  5. HYDROCODONE [Suspect]
     Indication: BACK PAIN
     Dosage: UNKNOWN
  6. AMBIEN [Suspect]
     Indication: BACK PAIN
     Dosage: UNKNOWN
  7. ZOLOFT [Suspect]
     Indication: BACK PAIN
     Dosage: UNKNOWN
  8. GABAPENTIN [Suspect]
     Indication: BACK PAIN
     Dosage: UNKNOWN

REACTIONS (2)
  - Overdose [Fatal]
  - Sleep apnoea syndrome [Fatal]
